FAERS Safety Report 10086666 (Version 1)
Quarter: 2014Q2

REPORT INFORMATION
  Report Type: Spontaneous
  Country: US (occurrence: None)
  Receive Date: 20140417
  Receipt Date: 20140417
  Transmission Date: 20141212
  Serious: Yes (Life-Threatening, Hospitalization)
  Sender: FDA-Public Use
  Company Number: None

PATIENT
  Age: 8 Year
  Sex: Male
  Weight: 26 kg

DRUGS (1)
  1. PEGASPARGASE [Suspect]
     Indication: LEUKAEMIA
     Dosage: 2425 UNITS X1 INTRAVENOUS
     Route: 042
     Dates: start: 20140403, end: 20140403

REACTIONS (5)
  - Pruritus [None]
  - Oedema mucosal [None]
  - Pallor [None]
  - Hypotension [None]
  - Systemic lupus erythematosus [None]
